FAERS Safety Report 7162228-X (Version None)
Quarter: 2010Q4

REPORT INFORMATION
  Report Type: 
  Country: None (occurrence: None)
  Receive Date: 20101215
  Receipt Date: 20090917
  Transmission Date: 20110411
  Serious: Yes (Other)
  Sender: FDA-Public Use
  Company Number: BR-PFIZER INC-2009257912

PATIENT
  Age: 67 Year

DRUGS (2)
  1. LYRICA [Suspect]
     Indication: BACK PAIN
     Dosage: 75 MG, 2X/DAY
     Route: 048
     Dates: start: 20090819, end: 20090819
  2. RIVOTRIL [Concomitant]
     Dosage: 0.5 MG, UNK

REACTIONS (13)
  - ABDOMINAL PAIN [None]
  - AREFLEXIA [None]
  - CALCIUM DEFICIENCY [None]
  - CONFUSIONAL STATE [None]
  - DYSURIA [None]
  - HYPOKALAEMIA [None]
  - HYPOKINESIA [None]
  - MEMORY IMPAIRMENT [None]
  - PAIN [None]
  - RENAL FAILURE [None]
  - SEDATION [None]
  - SYNCOPE [None]
  - TREMOR [None]
